FAERS Safety Report 7642499-3 (Version None)
Quarter: 2011Q3

REPORT INFORMATION
  Report Type: 
  Country: None (occurrence: None)
  Receive Date: 20110728
  Receipt Date: 20110725
  Transmission Date: 20111222
  Serious: Yes (Hospitalization, Other)
  Sender: FDA-Public Use
  Company Number: US-PFIZER INC-2011066049

PATIENT
  Sex: Female

DRUGS (1)
  1. CHANTIX [Suspect]
     Indication: SMOKING CESSATION THERAPY
     Dosage: STARTING PACK AND TWO CONTINUING PACKS
     Route: 048
     Dates: start: 20080717, end: 20090101

REACTIONS (4)
  - INTENTIONAL OVERDOSE [None]
  - ANXIETY DISORDER [None]
  - SUICIDE ATTEMPT [None]
  - DEPRESSION [None]
